FAERS Safety Report 8094378-8 (Version None)
Quarter: 2012Q1

REPORT INFORMATION
  Report Type: 
  Country: None (occurrence: None)
  Receive Date: 20120130
  Receipt Date: 20120123
  Transmission Date: 20120608
  Serious: Yes (Death, Hospitalization)
  Sender: FDA-Public Use
  Company Number: US-BAYER-2011-052497

PATIENT
  Age: 23 Year
  Sex: Female
  Weight: 136 kg

DRUGS (24)
  1. GEODON [Concomitant]
  2. LEXAPRO [Concomitant]
  3. HUMALOG [Concomitant]
  4. LANTUS [Concomitant]
     Indication: DIABETES MELLITUS
  5. YAZ [Suspect]
     Indication: ACNE
     Dosage: UNK
     Dates: start: 20090101
  6. CLONIDINE [Concomitant]
  7. CYMBALTA [Concomitant]
  8. MORPHINE [Concomitant]
     Indication: PAIN
  9. METFORMIN HCL [Concomitant]
  10. TRI-SPRINTEC [Concomitant]
  11. XANAX [Concomitant]
  12. ACETAMINOPHEN [Concomitant]
  13. MINI-PILL [Concomitant]
  14. GABAPENTIN [Concomitant]
  15. ALIMENTARY TRACT AND METABOLISM [Concomitant]
  16. IBUPROFEN [Concomitant]
  17. CAMILA [Concomitant]
  18. FUROSEMIDE [Concomitant]
  19. LYRICA [Concomitant]
     Indication: NEUROPATHY PERIPHERAL
  20. OMEPRAZOLE [Concomitant]
  21. YAZ [Suspect]
     Indication: PREMENSTRUAL SYNDROME
  22. SEROQUEL [Concomitant]
  23. FLUCONAZOLE [Concomitant]
     Indication: FUNGAL CYSTITIS
  24. LORATADINE [Concomitant]

REACTIONS (3)
  - DEEP VEIN THROMBOSIS [None]
  - PULMONARY EMBOLISM [None]
  - PAIN [None]
